FAERS Safety Report 10519148 (Version 3)
Quarter: 2015Q2

REPORT INFORMATION
  Report Type: Spontaneous
  Country: US (occurrence: US)
  Receive Date: 20141015
  Receipt Date: 20150403
  Transmission Date: 20150821
  Serious: No
  Sender: FDA-Public Use
  Company Number: US-GLAXOSMITHKLINE-A1080561A

PATIENT
  Age: 72 Year
  Sex: Female

DRUGS (4)
  1. LIDODERM [Concomitant]
     Active Substance: LIDOCAINE
  2. VIVELLE-DOT [Concomitant]
     Active Substance: ESTRADIOL
  3. ANORO ELLIPTA [Suspect]
     Active Substance: UMECLIDINIUM BROMIDE\VILANTEROL TRIFENATATE
     Dosage: 1 PUFF(S), QD
     Route: 055
     Dates: start: 201412, end: 20150119
  4. ANORO ELLIPTA [Suspect]
     Active Substance: UMECLIDINIUM BROMIDE\VILANTEROL TRIFENATATE
     Indication: CHRONIC OBSTRUCTIVE PULMONARY DISEASE
     Dosage: 1 PUFF(S),  EVERY 2 TO 3 DAYS
     Route: 055
     Dates: start: 20140625

REACTIONS (15)
  - Malaise [Unknown]
  - Feeling hot [Not Recovered/Not Resolved]
  - Blister [Not Recovered/Not Resolved]
  - Inappropriate schedule of drug administration [Recovered/Resolved]
  - Treatment noncompliance [Recovered/Resolved]
  - Cough [Unknown]
  - Gait disturbance [Recovering/Resolving]
  - Viral infection [Recovered/Resolved]
  - Ear infection [Recovered/Resolved]
  - Dyspnoea [Recovering/Resolving]
  - Abnormal dreams [Not Recovered/Not Resolved]
  - Wheezing [Recovering/Resolving]
  - Dysphonia [Unknown]
  - Peripheral swelling [Not Recovered/Not Resolved]
  - Pain in extremity [Not Recovered/Not Resolved]

NARRATIVE: CASE EVENT DATE: 201406
